FAERS Safety Report 11058878 (Version 1)
Quarter: 2015Q2

REPORT INFORMATION
  Report Type: Report from Study
  Country: US (occurrence: None)
  Receive Date: 20150420
  Receipt Date: 20150420
  Transmission Date: 20150821
  Serious: No
  Sender: FDA-Public Use
  Company Number: AEGR001181

PATIENT
  Age: 78 Year
  Sex: Male
  Weight: 77.1 kg

DRUGS (7)
  1. PRILOSEC (OMEPRAZOLE) [Concomitant]
     Active Substance: OMEPRAZOLE MAGNESIUM
  2. ASPIRIN (ACETYLSALICYLIC ACID) [Concomitant]
     Active Substance: ASPIRIN
  3. BYSTOLI C(NEBIVOLOL HYDROCHLORIDE) [Concomitant]
  4. VITAMIN E (TOCOPHERYL ACETATE) [Concomitant]
  5. JUXTAPID [Suspect]
     Active Substance: LOMITAPIDE MESYLATE
     Indication: TYPE IIA HYPERLIPIDAEMIA
     Route: 048
     Dates: start: 20140915, end: 201411
  6. OMEGA 3-6-9 (FISH OIL, TOCOPHEROL) [Concomitant]
  7. MULTIVITAMIN (VITAMINS NOS) [Concomitant]
     Active Substance: VITAMINS

REACTIONS (4)
  - Therapy cessation [None]
  - Myalgia [None]
  - Influenza [None]
  - Diarrhoea [None]

NARRATIVE: CASE EVENT DATE: 201501
